FAERS Safety Report 17466586 (Version 1)
Quarter: 2020Q1

REPORT INFORMATION
  Report Type: Spontaneous
  Country: US (occurrence: US)
  Receive Date: 20200213
  Receipt Date: 20200213
  Transmission Date: 20200409
  Serious: Yes (Hospitalization, Other)
  Sender: FDA-Public Use
  Company Number: None

PATIENT
  Age: 72 Year
  Sex: Male
  Weight: 73.48 kg

DRUGS (14)
  1. VALSARTAN (DIOVAN) [Concomitant]
  2. ELIQUIS [Concomitant]
     Active Substance: APIXABAN
  3. MULTIPLE VITAMIN (ONE-A-DAY MENS ) [Concomitant]
  4. PEPCID [Concomitant]
     Active Substance: FAMOTIDINE
  5. OMEGA-3 FATTY ACIDS (OMEGA-3) [Concomitant]
  6. ZYLOPRIM [Concomitant]
     Active Substance: ALLOPURINOL
  7. CHOLECCALCIFEROL (VITAMIN D) [Concomitant]
  8. PLAVIX [Concomitant]
     Active Substance: CLOPIDOGREL BISULFATE
  9. PRAVACHOL [Concomitant]
     Active Substance: PRAVASTATIN SODIUM
  10. PSYLLIUM [Concomitant]
     Active Substance: PLANTAGO SEED
  11. HYDROCHLOROTHIAZIDE (HYDRODIURIL) [Concomitant]
  12. VITAMIN C [Concomitant]
     Active Substance: ASCORBIC ACID
  13. DILTIAZEM (CARDIZEM) [Concomitant]
  14. LEVAQUIN [Suspect]
     Active Substance: LEVOFLOXACIN
     Indication: SINUSITIS
     Dosage: ?          QUANTITY:500 MG MILLIGRAM(S);?
     Route: 048
     Dates: start: 20200102, end: 20200112

REACTIONS (2)
  - Amnesia [None]
  - Road traffic accident [None]

NARRATIVE: CASE EVENT DATE: 20200105
